FAERS Safety Report 4462456-8 (Version None)
Quarter: 2004Q3

REPORT INFORMATION
  Report Type: 
  Country: None (occurrence: None)
  Receive Date: 20040928
  Receipt Date: 20040916
  Transmission Date: 20050211
  Serious: Yes (Hospitalization)
  Sender: FDA-Public Use
  Company Number: CIP04001985

PATIENT
  Age: 62 Year
  Sex: Female

DRUGS (5)
  1. ACTONEL [Suspect]
     Indication: OSTEOPOROSIS
     Dosage: 2.5 MG, DAILY, ORAL
     Route: 048
     Dates: start: 20030715, end: 20040715
  2. RHEUMATREX [Suspect]
     Indication: MUSCULOSKELETAL PAIN
     Dosage: 6 MG, DAILY, ORAL
     Route: 048
     Dates: start: 19920101
  3. AZULFIDINE [Concomitant]
     Indication: MUSCULOSKELETAL PAIN
     Dosage: 500 MG, DAILY, ORAL
     Route: 048
     Dates: start: 19920101
  4. LOXONIN (LOXOPROFEN SODIUM) [Suspect]
     Indication: MUSCULOSKELETAL PAIN
     Dosage: 180 MG, DAILY, ORAL
     Route: 048
     Dates: start: 19920101
  5. PREDNISOLONE [Concomitant]
     Indication: MUSCULOSKELETAL PAIN
     Dosage: 2.5 MG, DAILY, ORAL
     Route: 048

REACTIONS (7)
  - BLOOD ALBUMIN DECREASED [None]
  - BLOOD LACTATE DEHYDROGENASE INCREASED [None]
  - CONDITION AGGRAVATED [None]
  - HAEMATOCRIT DECREASED [None]
  - HAEMOGLOBIN DECREASED [None]
  - MYOCARDIAL INFARCTION [None]
  - PROTEIN TOTAL DECREASED [None]
